FAERS Safety Report 4443164-6 (Version None)
Quarter: 2004Q3

REPORT INFORMATION
  Report Type: 
  Country: None (occurrence: None)
  Receive Date: 20040903
  Receipt Date: 20040706
  Transmission Date: 20050211
  Serious: Yes (Other)
  Sender: FDA-Public Use
  Company Number: 2004UW13822

PATIENT
  Age: 62 Year
  Sex: Female
  Weight: 92.0802 kg

DRUGS (5)
  1. CRESTOR [Suspect]
     Indication: BLOOD CHOLESTEROL INCREASED
     Dosage: 10 MG PO
     Route: 048
  2. HORMONE THERAPY [Concomitant]
  3. ASPIRIN [Concomitant]
  4. NIACIN [Concomitant]
  5. MULTIVITAMIN [Concomitant]

REACTIONS (1)
  - HEART RATE INCREASED [None]
